FAERS Safety Report 8757618 (Version 2)
Quarter: 2012Q4

REPORT INFORMATION
  Report Type: 
  Country: PL (occurrence: PL)
  Receive Date: 20120828
  Receipt Date: 20120904
  Transmission Date: 20130627
  Serious: Yes (Hospitalization)
  Sender: FDA-Public Use
  Company Number: PHHY2012PL071873

PATIENT
  Age: 56 Year
  Sex: Female

DRUGS (2)
  1. TOPOTECAN [Suspect]
     Indication: CERVIX CARCINOMA
     Dosage: .75 mg/m2, UNK
     Dates: start: 201010, end: 201102
  2. CISPLATIN [Suspect]
     Indication: CERVIX CARCINOMA
     Dosage: 50 mg/m2, every 3 weeks
     Dates: start: 201010, end: 201102

REACTIONS (9)
  - Shock haemorrhagic [Recovered/Resolved]
  - Hydronephrosis [Recovered/Resolved]
  - Renal failure acute [Recovered/Resolved]
  - Anaemia [Recovered/Resolved]
  - Genital haemorrhage [Recovered/Resolved]
  - Peritoneal haemorrhage [Recovered/Resolved]
  - Hypotension [Recovered/Resolved]
  - Tachycardia [Recovered/Resolved]
  - Loss of consciousness [Recovered/Resolved]
